FAERS Safety Report 10188852 (Version 2)
Quarter: 2014Q2

REPORT INFORMATION
  Report Type: Spontaneous
  Country: IE (occurrence: IE)
  Receive Date: 20140522
  Receipt Date: 20140522
  Transmission Date: 20141212
  Serious: Yes (Other)
  Sender: FDA-Public Use
  Company Number: IE-PFIZER INC-2014114846

PATIENT
  Age: 49 Year
  Sex: Male
  Weight: 84 kg

DRUGS (6)
  1. LYRICA [Suspect]
     Indication: BACK PAIN
     Dosage: 150 MG, UNK
     Route: 048
     Dates: start: 2013, end: 2013
  2. LYRICA [Suspect]
     Indication: INTERVERTEBRAL DISC PROTRUSION
     Dosage: 225 MG, UNK
     Route: 048
     Dates: start: 201310, end: 2014
  3. LYRICA [Suspect]
     Indication: NEURALGIA
  4. ARTHROTEC [Concomitant]
     Dosage: 75 MG, AS NEEDED
     Route: 048
     Dates: start: 2013
  5. ELTROXIN [Concomitant]
     Dosage: 200 MG, DAILY
     Route: 048
     Dates: start: 2005
  6. ROCALTROL [Concomitant]
     Dosage: 0.25 MG, DAILY
     Route: 048
     Dates: start: 2005

REACTIONS (9)
  - Suicidal ideation [Recovering/Resolving]
  - Self-injurious ideation [Recovering/Resolving]
  - Social avoidant behaviour [Recovering/Resolving]
  - Depression [Recovering/Resolving]
  - Psychiatric symptom [Recovering/Resolving]
  - Anxiety [Recovering/Resolving]
  - Abnormal dreams [Recovering/Resolving]
  - Feeling cold [Recovering/Resolving]
  - Feeling abnormal [Recovering/Resolving]
